FAERS Safety Report 6604239-6 (Version None)
Quarter: 2010Q1

REPORT INFORMATION
  Report Type: 
  Country: None (occurrence: None)
  Receive Date: 20100226
  Receipt Date: 20090716
  Transmission Date: 20100710
  Serious: Yes (Other)
  Sender: FDA-Public Use
  Company Number: A0797325A

PATIENT
  Age: 63 Year
  Sex: Female

DRUGS (3)
  1. LAMICTAL CD [Suspect]
     Dosage: 25MG FOUR TIMES PER DAY
     Route: 048
     Dates: start: 20081001
  2. DEPAKOTE [Concomitant]
  3. LORAZEPAM [Concomitant]

REACTIONS (1)
  - HALLUCINATION [None]
